FAERS Safety Report 9531124 (Version 1)
Quarter: 2013Q3

REPORT INFORMATION
  Report Type: Spontaneous
  Country: US (occurrence: None)
  Receive Date: 20130916
  Receipt Date: 20130916
  Transmission Date: 20140515
  Serious: No
  Sender: FDA-Public Use
  Company Number: None

PATIENT
  Age: 10 Year
  Sex: Male
  Weight: 27.22 kg

DRUGS (1)
  1. METHYLPHENIDATE 54MG MALLINCKRO [Suspect]
     Indication: ATTENTION DEFICIT/HYPERACTIVITY DISORDER
     Dosage: 1; ONCE DAILY
     Route: 048
     Dates: start: 20130901, end: 20130915

REACTIONS (7)
  - Abnormal behaviour [None]
  - Screaming [None]
  - Educational problem [None]
  - Fear [None]
  - Speech disorder [None]
  - Depression [None]
  - Therapeutic response unexpected with drug substitution [None]
